FAERS Safety Report 20219149 (Version 7)
Quarter: 2022Q3

REPORT INFORMATION
  Report Type: Report from Study
  Country: US (occurrence: US)
  Receive Date: 20211222
  Receipt Date: 20220714
  Transmission Date: 20221027
  Serious: No
  Sender: FDA-Public Use
  Company Number: US-NOVARTISTESTPH-NVSC2021US293680

PATIENT
  Sex: Male

DRUGS (1)
  1. COSENTYX [Suspect]
     Active Substance: SECUKINUMAB
     Indication: Psoriasis
     Dosage: 300 MG, QMO
     Route: 058
     Dates: start: 202110

REACTIONS (6)
  - Limb discomfort [Unknown]
  - Musculoskeletal pain [Unknown]
  - Psoriasis [Not Recovered/Not Resolved]
  - Back pain [Unknown]
  - Movement disorder [Unknown]
  - Drug ineffective [Unknown]
